FAERS Safety Report 12581474 (Version 3)
Quarter: 2016Q3

REPORT INFORMATION
  Report Type: Report from Study
  Country: CZ (occurrence: CZ)
  Receive Date: 20160721
  Receipt Date: 20160802
  Transmission Date: 20161109
  Serious: Yes (Hospitalization)
  Sender: FDA-Public Use
  Company Number: CZ-VERTEX PHARMACEUTICALS-2016-004407

PATIENT
  Age: 18 Year
  Sex: Female
  Weight: 44 kg

DRUGS (17)
  1. ORKAMBI [Suspect]
     Active Substance: IVACAFTOR\LUMACAFTOR
     Indication: CYSTIC FIBROSIS
     Dosage: 400MG/250MG, BID
     Route: 048
     Dates: start: 20160713
  2. VITAMIN E [Concomitant]
     Active Substance: .ALPHA.-TOCOPHEROL
     Indication: PANCREATIC INSUFFICIENCY
     Dosage: 100 MG, QD
     Route: 048
     Dates: start: 200506
  3. AVAMYS [Concomitant]
     Active Substance: FLUTICASONE FUROATE
     Indication: SEASONAL ALLERGY
     Dosage: 2 PUFFS, QD
     Route: 045
     Dates: start: 2008
  4. KREON 25000 [Concomitant]
     Active Substance: PANCRELIPASE
     Indication: PANCREATIC INSUFFICIENCY
     Dosage: 9-10 PER DAY WITH MEAL
     Route: 048
     Dates: start: 200506
  5. PULMOZYME [Concomitant]
     Active Substance: DORNASE ALFA
     Indication: CYSTIC FIBROSIS LUNG
     Dosage: 2.5 ML, QD
     Route: 055
     Dates: start: 2005
  6. DIGOXIN. [Concomitant]
     Active Substance: DIGOXIN
     Indication: RIGHT VENTRICULAR FAILURE
     Dosage: 0.125 MG, QD
     Route: 048
     Dates: start: 201508
  7. SINGULAIR [Concomitant]
     Active Substance: MONTELUKAST SODIUM
     Indication: SEASONAL ALLERGY
     Dosage: 10 MG, QD
     Route: 048
     Dates: start: 2008
  8. SINGULAIR [Concomitant]
     Active Substance: MONTELUKAST SODIUM
     Indication: HYPERSENSITIVITY
  9. LONG TERM OXYGEN THERAPY [Concomitant]
     Indication: CHRONIC RESPIRATORY FAILURE
     Dosage: 3-4L/MIN, QD
     Dates: start: 201510
  10. VITAMIN C [Concomitant]
     Active Substance: ASCORBIC ACID
     Indication: VITAMIN SUPPLEMENTATION
     Dosage: 100 MG, QD
     Route: 048
     Dates: start: 200506
  11. AMILORIDE HYDROCHLORIDE. [Concomitant]
     Active Substance: AMILORIDE HYDROCHLORIDE
     Indication: CYSTIC FIBROSIS LUNG
     Dosage: 3 ML, BID
     Route: 055
     Dates: start: 2005
  12. VITAMIN A [Concomitant]
     Active Substance: VITAMIN A
     Indication: PANCREATIC INSUFFICIENCY
     Dosage: 1 DF, QD
     Route: 048
     Dates: start: 200506
  13. HELICID [Concomitant]
     Indication: GASTROOESOPHAGEAL REFLUX DISEASE
     Dosage: 20 MG, QD
     Route: 048
     Dates: start: 2010
  14. SYMBICORT [Concomitant]
     Active Substance: BUDESONIDE\FORMOTEROL FUMARATE DIHYDRATE
     Indication: CYSTIC FIBROSIS LUNG
     Dosage: 1 PUFF, BID
     Route: 055
     Dates: start: 201604
  15. VIGANTOL [Concomitant]
     Indication: PANCREATIC INSUFFICIENCY
     Dosage: 5 DROPS, QD
     Route: 048
     Dates: start: 200506
  16. AVAMYS [Concomitant]
     Active Substance: FLUTICASONE FUROATE
     Indication: NASAL POLYPS
  17. BRAMITOB [Concomitant]
     Active Substance: TOBRAMYCIN
     Indication: PSEUDOMONAS INFECTION
     Dosage: 300 MG (= 4ML) , BID
     Route: 055
     Dates: start: 201607

REACTIONS (1)
  - Infective pulmonary exacerbation of cystic fibrosis [Recovered/Resolved]

NARRATIVE: CASE EVENT DATE: 20160713
